FAERS Safety Report 24127242 (Version 1)
Quarter: 2024Q3

REPORT INFORMATION
  Report Type: Spontaneous
  Country: US (occurrence: None)
  Receive Date: 20240723
  Receipt Date: 20240723
  Transmission Date: 20241016
  Serious: Yes (Hospitalization)
  Sender: Public
  Company Number: None

PATIENT
  Sex: Female

DRUGS (5)
  1. COSENTYX [Suspect]
     Active Substance: SECUKINUMAB
     Indication: Ankylosing spondylitis
     Dosage: FREQUENCY : MONTHLY;?
     Route: 058
     Dates: start: 20221108
  2. AJOVY [Concomitant]
     Active Substance: FREMANEZUMAB-VFRM
  3. AMITRIPTYLINE [Concomitant]
     Active Substance: AMITRIPTYLINE
  4. COSENTYX [Concomitant]
     Active Substance: SECUKINUMAB
  5. NAPROXEN [Concomitant]
     Active Substance: NAPROXEN

REACTIONS (4)
  - Ankylosing spondylitis [None]
  - Therapy change [None]
  - Joint stiffness [None]
  - Fatigue [None]
